FAERS Safety Report 5152440-3 (Version None)
Quarter: 2006Q4

REPORT INFORMATION
  Report Type: 
  Country: None (occurrence: None)
  Receive Date: 20061116
  Receipt Date: 20060601
  Transmission Date: 20070319
  Serious: Yes (Death)
  Sender: FDA-Public Use
  Company Number: US-ELI_LILLY_AND_COMPANY-US200606000842

PATIENT
  Age: 66 Year
  Sex: Female
  Weight: 81.632 kg

DRUGS (2)
  1. ZYPREXA [Suspect]
     Dosage: 10 MG, UNKNOWN
     Dates: start: 19990101, end: 20030101
  2. ZYPREXA [Suspect]
     Dosage: 15 MG, UNK

REACTIONS (4)
  - DEATH [None]
  - DIABETES MELLITUS [None]
  - HYPERTENSION [None]
  - WEIGHT INCREASED [None]
